FAERS Safety Report 13645872 (Version 1)
Quarter: 2017Q2

REPORT INFORMATION
  Report Type: Spontaneous
  Country: IT (occurrence: IT)
  Receive Date: 20170613
  Receipt Date: 20170613
  Transmission Date: 20170830
  Serious: Yes (Other)
  Sender: FDA-Public Use
  Company Number: IT-ROCHE-1946741

PATIENT
  Age: 56 Year
  Sex: Male
  Weight: 75 kg

DRUGS (4)
  1. DIGOXIN. [Concomitant]
     Active Substance: DIGOXIN
     Indication: CONGESTIVE CARDIOMYOPATHY
     Route: 048
  2. COTELLIC [Suspect]
     Active Substance: COBIMETINIB
     Indication: MALIGNANT MELANOMA
     Dosage: 20 MG 63 (3X21) FILM COATED TABLETS
     Route: 048
     Dates: start: 20170127, end: 20170202
  3. ZELBORAF [Suspect]
     Active Substance: VEMURAFENIB
     Indication: MALIGNANT MELANOMA
     Dosage: 240 MG 56 TABLETS
     Route: 048
  4. CARVEDILOL. [Concomitant]
     Active Substance: CARVEDILOL
     Indication: CONGESTIVE CARDIOMYOPATHY
     Route: 065

REACTIONS (1)
  - Ejection fraction decreased [Recovering/Resolving]

NARRATIVE: CASE EVENT DATE: 20170202
